FAERS Safety Report 10571555 (Version 1)
Quarter: 2014Q4

REPORT INFORMATION
  Report Type: Spontaneous
  Country: US (occurrence: US)
  Receive Date: 20141107
  Receipt Date: 20141107
  Transmission Date: 20150529
  Serious: No
  Sender: FDA-Public Use
  Company Number: US-ABBVIE-14P-163-1193219-00

PATIENT
  Age: 63 Year
  Sex: Female
  Weight: 70.37 kg

DRUGS (5)
  1. TRICOR [Suspect]
     Active Substance: FENOFIBRATE
     Indication: BLOOD CHOLESTEROL INCREASED
     Route: 048
     Dates: start: 201309, end: 201311
  2. ASPIRIN. [Concomitant]
     Active Substance: ASPIRIN
     Indication: PAIN
  3. TRICOR [Suspect]
     Active Substance: FENOFIBRATE
     Route: 048
     Dates: start: 201311, end: 20131222
  4. LANTUS [Concomitant]
     Active Substance: INSULIN GLARGINE
     Indication: DIABETES MELLITUS
  5. METFORMIN [Concomitant]
     Active Substance: METFORMIN HYDROCHLORIDE
     Indication: DIABETES MELLITUS

REACTIONS (4)
  - Pain in extremity [Recovering/Resolving]
  - Pain in extremity [Recovering/Resolving]
  - Gait disturbance [Recovering/Resolving]
  - Inflammation [Recovering/Resolving]

NARRATIVE: CASE EVENT DATE: 201312
